FAERS Safety Report 14352697 (Version 1)
Quarter: 2018Q1

REPORT INFORMATION
  Report Type: Spontaneous
  Country: US (occurrence: US)
  Receive Date: 20180104
  Receipt Date: 20180104
  Transmission Date: 20180509
  Serious: No
  Sender: FDA-Public Use
  Company Number: US-PFIZER INC-2017550126

PATIENT
  Age: 60 Year
  Sex: Female
  Weight: 105.69 kg

DRUGS (2)
  1. BUSPIRONE [Concomitant]
     Active Substance: BUSPIRONE HYDROCHLORIDE
     Indication: ANXIETY
     Dosage: 10MG TABLET. SHE TOOK 1-2 TABLETS EVERY 6 HOURS
  2. GABAPENTIN. [Suspect]
     Active Substance: GABAPENTIN
     Indication: NERVE INJURY
     Dates: start: 201709, end: 201709

REACTIONS (6)
  - Insomnia [Recovered/Resolved]
  - Anxiety [Recovered/Resolved]
  - Product use in unapproved indication [Unknown]
  - Somnolence [Not Recovered/Not Resolved]
  - Dry mouth [Not Recovered/Not Resolved]
  - Panic attack [Unknown]

NARRATIVE: CASE EVENT DATE: 201709
